FAERS Safety Report 13857909 (Version 1)
Quarter: 2017Q3

REPORT INFORMATION
  Report Type: Spontaneous
  Country: JP (occurrence: JP)
  Receive Date: 20170811
  Receipt Date: 20170811
  Transmission Date: 20171127
  Serious: Yes (Other)
  Sender: FDA-Public Use
  Company Number: JP-ALKEM LABORATORIES LIMITED-JP-ALKEM-001655

PATIENT
  Age: 13 Year
  Sex: Male

DRUGS (6)
  1. MYCOPHENOLIC ACID. [Suspect]
     Active Substance: MYCOPHENOLIC ACID
     Dosage: MAINTENANCE IMMUNOSUPPRESSIVE, TACROLIMUS WAS INITIATED THEN AT 13 YEARS OF AGE DOSE WAS 2 MG
  2. TACROLIMUS. [Suspect]
     Active Substance: TACROLIMUS
     Indication: IMMUNOSUPPRESSION
     Dosage: MAINTENANCE IMMUNOSUPPRESSIVE, TACROLIMUS WAS INITIATED THEN AT 13 YEARS OF AGE DOSE WAS 2 MG
  3. METHYLPREDNISOLONE. [Suspect]
     Active Substance: METHYLPREDNISOLONE
     Indication: IMMUNOSUPPRESSION
     Dosage: STARETD AS MAINTENANCE IMMUNOSUPPRESSIVE, THEN AT 13 YEARS OF AGE IT WAS 2 MG ON ALTERNATE DAY
  4. MYCOPHENOLIC ACID. [Suspect]
     Active Substance: MYCOPHENOLIC ACID
     Dosage: STARETD AS MAINTENANCE IMMUNOSUPPRESSIVE, THEN AT 13 YEARS OF AGE IT WAS 2 MG ON ALTERNATE DAY
  5. MYCOPHENOLIC ACID. [Suspect]
     Active Substance: MYCOPHENOLIC ACID
     Indication: IMMUNOSUPPRESSION
     Dosage: MAINTENANCE IMMUNOSUPPRESSIVE, MMF DOSE WAS INCREASED THEN AT 13 YEARS OF AGE 750 MG OF MMF DAILY
  6. MYCOPHENOLATE MOFETIL. [Suspect]
     Active Substance: MYCOPHENOLATE MOFETIL
     Indication: IMMUNOSUPPRESSION
     Dosage: MAINTENANCE IMMUNOSUPPRESSIVE, MMF DOSE WAS INCREASED THEN AT 13 YEARS OF AGE 750 MG OF MMF DAILY

REACTIONS (2)
  - Post transplant lymphoproliferative disorder [Recovered/Resolved]
  - Diffuse large B-cell lymphoma [Recovered/Resolved]
